FAERS Safety Report 18223266 (Version 5)
Quarter: 2021Q1

REPORT INFORMATION
  Report Type: Spontaneous
  Country: FI (occurrence: FI)
  Receive Date: 20200902
  Receipt Date: 20210127
  Transmission Date: 20210419
  Serious: Yes (Hospitalization)
  Sender: FDA-Public Use
  Company Number: FI-ROCHE-2665839

PATIENT
  Age: 42 Year

DRUGS (9)
  1. OCREVUS [Suspect]
     Active Substance: OCRELIZUMAB
     Indication: RELAPSING-REMITTING MULTIPLE SCLEROSIS
     Route: 042
     Dates: start: 20191029
  2. DOXIMED [Concomitant]
     Active Substance: DOXYCYCLINE
  3. ROXITHROMYCIN [Concomitant]
     Active Substance: ROXITHROMYCIN
  4. TAMIFLU [Concomitant]
     Active Substance: OSELTAMIVIR PHOSPHATE
  5. AMOXICILLIN. [Concomitant]
     Active Substance: AMOXICILLIN
  6. AMORION [Concomitant]
     Active Substance: AMOXICILLIN
  7. CEFTRIAXONE. [Concomitant]
     Active Substance: CEFTRIAXONE
  8. INFLUENZA VACCINE [Concomitant]
     Active Substance: INFLUENZA VIRUS VACCINE
  9. OCREVUS [Suspect]
     Active Substance: OCRELIZUMAB
     Route: 042
     Dates: start: 20191112

REACTIONS (2)
  - Pneumonia mycoplasmal [Recovered/Resolved]
  - Respiratory tract infection viral [Recovered/Resolved]

NARRATIVE: CASE EVENT DATE: 20200313
